FAERS Safety Report 8014623 (Version 2)
Quarter: 2013Q4

REPORT INFORMATION
  Report Type: Spontaneous
  Country: US (occurrence: US)
  Receive Date: 20110629
  Receipt Date: 20131105
  Transmission Date: 20140711
  Serious: Yes (Other)
  Sender: FDA-Public Use
  Company Number: US-BAYER-2011-054868

PATIENT
  Age: 46 Year
  Sex: Female

DRUGS (15)
  1. YAZ [Suspect]
     Dosage: UNK
     Dates: start: 200706
  2. YASMIN [Suspect]
     Dosage: UNK
     Dates: start: 200706
  3. OCELLA [Suspect]
     Dosage: UNK
     Dates: start: 200706
  4. BENZACLIN [Concomitant]
     Dosage: UNK
     Dates: start: 20070819, end: 20080703
  5. CEPHALEXIN [Concomitant]
     Dosage: UNK
     Dates: start: 20080729
  6. METHYLPREDNISOLONE [Concomitant]
     Dosage: 4 MG
     Dates: start: 20080729
  7. APAP W/HYDROCODONE [Concomitant]
     Dosage: 5-500
     Dates: start: 20080917
  8. OMEPRAZOLE [Concomitant]
     Dosage: UNK
     Dates: start: 20080821, end: 20080917
  9. BUDEPRION [Concomitant]
     Dosage: UNK
     Dates: start: 20080710, end: 20081215
  10. ASTELIN [Concomitant]
     Dosage: 137 MCG
     Dates: start: 20080208, end: 20090122
  11. LISINOPRIL [Concomitant]
     Dosage: UNK
     Dates: start: 20080728, end: 20090413
  12. HYDROCHLOROTHIAZIDE [Concomitant]
     Dosage: UNK
     Dates: start: 20070917, end: 20090608
  13. LUNESTA [Concomitant]
     Dosage: 3 MG
     Dates: start: 20080124, end: 20090720
  14. FEXOFENADINE [Concomitant]
     Dosage: UNK
     Dates: start: 20080331, end: 20090720
  15. PATANOL [Concomitant]
     Dosage: UNK
     Dates: start: 20071003, end: 20090720

REACTIONS (10)
  - Pulmonary embolism [None]
  - Deep vein thrombosis [None]
  - Myocardial infarction [None]
  - Cerebrovascular accident [None]
  - Cholecystectomy [None]
  - Cholelithiasis [None]
  - Injury [None]
  - Pain [None]
  - Anxiety [None]
  - Anhedonia [None]
